FAERS Safety Report 18773015 (Version 1)
Quarter: 2021Q1

REPORT INFORMATION
  Report Type: Report from Study
  Country: None (occurrence: US)
  Receive Date: 20210121
  Receipt Date: 20210121
  Transmission Date: 20210419
  Serious: Yes (Other)
  Sender: FDA-Public Use
  Company Number: US-ABBVIE-21K-163-3731179-00

PATIENT
  Sex: Female

DRUGS (1)
  1. HUMIRA [Suspect]
     Active Substance: ADALIMUMAB
     Indication: PSORIASIS
     Route: 058
     Dates: start: 201902, end: 202011

REACTIONS (5)
  - Stress [Unknown]
  - Psoriasis [Not Recovered/Not Resolved]
  - Alopecia [Unknown]
  - Onychophagia [Unknown]
  - Hepatic cirrhosis [Unknown]
